FAERS Safety Report 17817570 (Version 1)
Quarter: 2020Q2

REPORT INFORMATION
  Report Type: Spontaneous
  Country: US (occurrence: US)
  Receive Date: 20200522
  Receipt Date: 20200522
  Transmission Date: 20200714
  Serious: Yes (Other)
  Sender: FDA-Public Use
  Company Number: US-MAYNE PHARMA-2019MYN000615

PATIENT

DRUGS (11)
  1. HYDROCHLOROTHIAZIDE. [Concomitant]
     Active Substance: HYDROCHLOROTHIAZIDE
     Indication: DIURETIC THERAPY
     Dosage: 25 MG, QD
     Dates: start: 2007
  2. NORTRIPTYLINE HYDROCHLORIDE. [Suspect]
     Active Substance: NORTRIPTYLINE HYDROCHLORIDE
     Indication: EMOTIONAL DISORDER
     Dosage: 200 MG, QD
     Dates: start: 2009
  3. LYRICA [Concomitant]
     Active Substance: PREGABALIN
     Indication: NEURALGIA
  4. ATENOLOL. [Concomitant]
     Active Substance: ATENOLOL
     Indication: HYPERTENSION
     Dosage: 50 MG, QD
     Dates: start: 2007
  5. NORTRIPTYLINE HYDROCHLORIDE. [Suspect]
     Active Substance: NORTRIPTYLINE HYDROCHLORIDE
     Indication: NEURALGIA
  6. LYRICA [Concomitant]
     Active Substance: PREGABALIN
     Indication: DIABETIC NEUROPATHY
     Dosage: 100 MG, QD
  7. MORPHINE [Concomitant]
     Active Substance: MORPHINE
     Indication: NEURALGIA
     Dosage: 30 MG, TID
  8. CARBAMAZEPINE. [Concomitant]
     Active Substance: CARBAMAZEPINE
     Indication: DIABETIC NEUROPATHY
     Dosage: 700 MG, QD
  9. HUMALIN [Concomitant]
     Active Substance: INSULIN NOS
     Indication: DIABETES MELLITUS
     Dosage: 60UNITS/DAY
     Route: 058
     Dates: start: 201905
  10. ATORVASTATIN [Concomitant]
     Active Substance: ATORVASTATIN
     Indication: HEART INJURY
     Dosage: 20 MG, QD
     Route: 048
     Dates: start: 2019
  11. PANTOPRAZOLE [Concomitant]
     Active Substance: PANTOPRAZOLE
     Indication: ACIDOSIS
     Dosage: 40 MG, QD
     Route: 048
     Dates: start: 2013

REACTIONS (5)
  - Neuropathy peripheral [Not Recovered/Not Resolved]
  - Neuralgia [Not Recovered/Not Resolved]
  - Drug ineffective for unapproved indication [Unknown]
  - Suicidal ideation [Not Recovered/Not Resolved]
  - Swelling [Not Recovered/Not Resolved]
